FAERS Safety Report 19602805 (Version 1)
Quarter: 2021Q3

REPORT INFORMATION
  Report Type: Report from Study
  Country: GB (occurrence: GB)
  Receive Date: 20210724
  Receipt Date: 20210724
  Transmission Date: 20211014
  Serious: Yes (Other)
  Sender: FDA-Public Use
  Company Number: GB-CELLTRION INC.-2021GB009781

PATIENT

DRUGS (31)
  1. CHLORHEXIDINE [Concomitant]
     Active Substance: CHLORHEXIDINE
     Dosage: UNK
     Route: 048
     Dates: start: 20180503
  2. IBUPROFEN. [Concomitant]
     Active Substance: IBUPROFEN
     Dosage: UNK (DOSE FORM: 245)
     Route: 048
     Dates: start: 201912
  3. ZOLEDRONIC ACID [Concomitant]
     Active Substance: ZOLEDRONIC ACID
     Dosage: UNK
     Route: 042
     Dates: start: 20180124, end: 20180615
  4. BISACODYL. [Concomitant]
     Active Substance: BISACODYL
     Dosage: 5 MG (DOSE FORM: 245)
     Route: 048
     Dates: start: 20180320
  5. DEXAMETHASONE. [Concomitant]
     Active Substance: DEXAMETHASONE
     Dosage: 2 MG, (DOSE FORM: 245)
     Route: 048
     Dates: start: 20180315, end: 2018
  6. DIAZEPAM. [Concomitant]
     Active Substance: DIAZEPAM
     Dosage: 10 MG, (DOSE FORM: 245)
     Route: 048
     Dates: start: 20200206
  7. LORAZEPAM. [Concomitant]
     Active Substance: LORAZEPAM
     Dosage: 1 MG, PRN (DOSE FORM: 245)
     Route: 048
     Dates: start: 20200604
  8. ORAMORPH [Concomitant]
     Active Substance: MORPHINE SULFATE
     Dosage: 10 MG
     Route: 048
     Dates: start: 201802
  9. PACLITAXEL. [Suspect]
     Active Substance: PACLITAXEL
     Indication: BREAST CANCER METASTATIC
     Dosage: 156 MG
     Route: 042
     Dates: start: 20180216, end: 20180713
  10. CLARITHROMYCIN. [Concomitant]
     Active Substance: CLARITHROMYCIN
     Dosage: 1000 MG, (DOSE FORM: 245)
     Route: 048
     Dates: start: 20200817, end: 20200824
  11. DOCUSATE [Concomitant]
     Active Substance: DOCUSATE
     Indication: PROPHYLAXIS
     Dosage: 200 MG, (DOSE FORM: 245)
     Route: 048
     Dates: start: 20180222
  12. DOCUSATE [Concomitant]
     Active Substance: DOCUSATE
     Dosage: 2 CAPSULE, BID (DOSE FORM: 5)
     Route: 048
     Dates: start: 20191125
  13. PARACETAMOL [Concomitant]
     Active Substance: ACETAMINOPHEN
     Dosage: 1 G, (DOSE FORM: 245)
     Route: 048
  14. ADCAL D3 [Concomitant]
     Active Substance: CALCIUM CARBONATE\CHOLECALCIFEROL
     Dosage: UNK, (DOSE FORM: 245)
     Route: 048
     Dates: start: 20180224
  15. FUROSEMIDE. [Concomitant]
     Active Substance: FUROSEMIDE
     Dosage: 80 MG, (DOSE FORM: 245)
     Route: 048
     Dates: start: 20200409, end: 20200409
  16. METOCLOPRAMIDE. [Concomitant]
     Active Substance: METOCLOPRAMIDE
     Dosage: 10 MG, (DOSE FORM: 245)
     Route: 048
     Dates: start: 20180714
  17. MORPHINE [Concomitant]
     Active Substance: MORPHINE
     Dosage: UNK
     Route: 048
     Dates: start: 20180205
  18. OMEPRAZOLE. [Concomitant]
     Active Substance: OMEPRAZOLE
     Dosage: 40 MG, (DOSE FORM: 245)
     Route: 048
     Dates: start: 20180226
  19. TRASTUZUMAB (UNKNOWN) [Suspect]
     Active Substance: TRASTUZUMAB
     Indication: BREAST CANCER METASTATIC
     Dosage: 600 MG (DOSE FORM: 231)
     Route: 058
     Dates: start: 20180216, end: 20190812
  20. DEXAMETHASONE. [Concomitant]
     Active Substance: DEXAMETHASONE
     Dosage: 2 MG, (DOSE FORM: 245)
     Route: 048
     Dates: start: 20180131, end: 20180206
  21. DIAZEPAM. [Concomitant]
     Active Substance: DIAZEPAM
     Dosage: 5 MG, (DOSE FORM: 245)
     Route: 065
     Dates: start: 20191212, end: 20200205
  22. FEXOFENADINE [Concomitant]
     Active Substance: FEXOFENADINE HYDROCHLORIDE
     Dosage: 180 MG, (DOSE FORM: 245)
     Route: 048
     Dates: start: 20200817
  23. LIDOCAINE. [Concomitant]
     Active Substance: LIDOCAINE
     Dosage: UNK, QD
     Route: 061
     Dates: start: 20180222, end: 2018
  24. TRASTUZUMAB EMTANSINE [Suspect]
     Active Substance: ADO-TRASTUZUMAB EMTANSINE
     Indication: BREAST CANCER METASTATIC
     Dosage: 400 MG/KG, EVERY 3 WEEKS (DOSE FORM: 230)
     Route: 042
     Dates: start: 20190906
  25. DEXAMETHASONE. [Concomitant]
     Active Substance: DEXAMETHASONE
     Dosage: 8 MG, (DOSE FORM: 245)
     Route: 048
     Dates: start: 20180110, end: 20180130
  26. METOCLOPRAMIDE. [Concomitant]
     Active Substance: METOCLOPRAMIDE
     Dosage: 10 MG, (DOSE FORM: 245)
     Route: 048
     Dates: start: 20180216, end: 20180713
  27. BENZYDAMINE [Concomitant]
     Active Substance: BENZYDAMINE
     Dosage: 15 ML
     Route: 065
     Dates: start: 20191018
  28. DOCUSATE [Concomitant]
     Active Substance: DOCUSATE
     Dosage: 2 CAPSULE, BID (DOSE FORM: 5)
     Route: 048
     Dates: start: 20191125
  29. FUROSEMIDE. [Concomitant]
     Active Substance: FUROSEMIDE
     Dosage: 80 MG, (DOSE FORM: 245)
     Route: 048
     Dates: start: 20200409, end: 20200409
  30. MIRTAZAPINE. [Concomitant]
     Active Substance: MIRTAZAPINE
     Dosage: 15 MG, (DOSE FORM: 245)
     Route: 048
     Dates: start: 20200205
  31. ZOLEDRONIC ACID [Concomitant]
     Active Substance: ZOLEDRONIC ACID
     Dosage: 3 MG, (DOSE FORM: 293)
     Route: 042
     Dates: start: 20181126

REACTIONS (3)
  - Cellulitis [Not Recovered/Not Resolved]
  - Skin ulcer [Recovered/Resolved]
  - Incorrect route of product administration [Unknown]

NARRATIVE: CASE EVENT DATE: 20200311
